FAERS Safety Report 4444334-3 (Version None)
Quarter: 2004Q3

REPORT INFORMATION
  Report Type: 
  Country: None (occurrence: None)
  Receive Date: 20040729
  Receipt Date: 20030915
  Transmission Date: 20050211
  Serious: Yes (Disabling)
  Sender: FDA-Public Use
  Company Number: HQWYE721917SEP03

PATIENT
  Sex: Male

DRUGS (1)
  1. MINOCYCLINE (MINOCYCLINE, CAPSULE, COATED PELLETS) [Suspect]
     Indication: ACNE
     Dosage: ORAL
     Route: 048

REACTIONS (1)
  - ARTHRALGIA [None]
